FAERS Safety Report 8827840 (Version 1)
Quarter: 2012Q4

REPORT INFORMATION
  Report Type: 
  Country: US (occurrence: US)
  Receive Date: 20121008
  Receipt Date: 20121008
  Transmission Date: 20130627
  Serious: Yes (Other)
  Sender: FDA-Public Use
  Company Number: US-SANOFI-AVENTIS-2012SA071279

PATIENT
  Age: 62 Year
  Sex: Male

DRUGS (1)
  1. LANTUS [Suspect]
     Indication: DIABETES
     Dosage: 84 units in the AM and at HS Dose:84 unit(s)
     Route: 058

REACTIONS (4)
  - Renal failure [Unknown]
  - Blindness [Unknown]
  - Anaemia [Unknown]
  - Conjunctivitis infective [Unknown]
